FAERS Safety Report 15644722 (Version 3)
Quarter: 2019Q1

REPORT INFORMATION
  Report Type: Spontaneous
  Country: DE (occurrence: DE)
  Receive Date: 20181121
  Receipt Date: 20190128
  Transmission Date: 20190417
  Serious: Yes (Hospitalization, Other)
  Sender: FDA-Public Use
  Company Number: DE-SA-2018SA315142

PATIENT
  Age: 39 Year
  Sex: Female

DRUGS (4)
  1. LEMTRADA [Suspect]
     Active Substance: ALEMTUZUMAB
     Indication: MULTIPLE SCLEROSIS
     Dosage: 12 MG, UNK
     Route: 041
     Dates: start: 20170613, end: 20170615
  2. PROPIVERINE [Concomitant]
     Active Substance: PROPIVERINE
     Indication: BLADDER DYSFUNCTION
     Dosage: 5 MG, UNK
     Route: 065
     Dates: start: 20150115
  3. IBUPROFEN. [Concomitant]
     Active Substance: IBUPROFEN
     Dosage: 400 MG
  4. LEMTRADA [Suspect]
     Active Substance: ALEMTUZUMAB
     Dosage: 12 MG, UNK
     Route: 041
     Dates: start: 20160614, end: 20160618

REACTIONS (4)
  - Back pain [Recovered/Resolved]
  - Basedow^s disease [Not Recovered/Not Resolved]
  - Spinal osteoarthritis [Recovered/Resolved]
  - Spinal osteoarthritis [Recovered/Resolved]

NARRATIVE: CASE EVENT DATE: 20170115
